FAERS Safety Report 8522067-1 (Version None)
Quarter: 2012Q3

REPORT INFORMATION
  Report Type: 
  Country: None (occurrence: None)
  Receive Date: 20120719
  Receipt Date: 20120717
  Transmission Date: 20120928
  Serious: No
  Sender: FDA-Public Use
  Company Number: US-TEVA-349160USA

PATIENT
  Age: 20 Year
  Sex: Female
  Weight: 62.652 kg

DRUGS (1)
  1. PLAN B ONE-STEP [Suspect]
     Indication: POST COITAL CONTRACEPTION
     Dosage: 1.5 MILLIGRAM;
     Route: 048
     Dates: start: 20120702, end: 20120702

REACTIONS (2)
  - DIZZINESS [None]
  - MENSTRUATION IRREGULAR [None]
